FAERS Safety Report 15950469 (Version 1)
Quarter: 2019Q1

REPORT INFORMATION
  Report Type: Spontaneous
  Country: US (occurrence: US)
  Receive Date: 20190212
  Receipt Date: 20190212
  Transmission Date: 20190417
  Serious: No
  Sender: FDA-Public Use
  Company Number: US-AQUA PHARMACEUTICALS-2018AQU000082

PATIENT

DRUGS (1)
  1. MONODOX [Suspect]
     Active Substance: DOXYCYCLINE
     Indication: BACTERIAL DISEASE CARRIER
     Dosage: 200 MG, QD
     Route: 048
     Dates: start: 2014

REACTIONS (5)
  - Bacterial disease carrier [Unknown]
  - Intervertebral disc protrusion [Not Recovered/Not Resolved]
  - Asthenia [Not Recovered/Not Resolved]
  - Back pain [Not Recovered/Not Resolved]
  - Fatigue [Not Recovered/Not Resolved]

NARRATIVE: CASE EVENT DATE: 2014
